FAERS Safety Report 9533804 (Version 1)
Quarter: 2013Q3

REPORT INFORMATION
  Report Type: Spontaneous
  Country: GB (occurrence: GB)
  Receive Date: 20130918
  Receipt Date: 20130918
  Transmission Date: 20140515
  Serious: Yes (Hospitalization, Other)
  Sender: FDA-Public Use
  Company Number: GB-WATSON-2013-16352

PATIENT
  Sex: Male

DRUGS (1)
  1. BACLOFEN (UNKNOWN) [Suspect]
     Indication: PRODUCT USED FOR UNKNOWN INDICATION
     Dosage: UNK
     Route: 037

REACTIONS (6)
  - Drug withdrawal syndrome [Unknown]
  - Diarrhoea [Unknown]
  - Back pain [Unknown]
  - Abdominal pain [Unknown]
  - Pain in extremity [Unknown]
  - Underdose [Unknown]
